FAERS Safety Report 6610583-9 (Version None)
Quarter: 2010Q1

REPORT INFORMATION
  Report Type: 
  Country: None (occurrence: None)
  Receive Date: 20100302
  Receipt Date: 20100218
  Transmission Date: 20100710
  Serious: Yes (Other)
  Sender: FDA-Public Use
  Company Number: US-PFIZER INC-2010024819

PATIENT
  Sex: Male
  Weight: 90.703 kg

DRUGS (6)
  1. GEODON [Suspect]
     Indication: HYPOMANIA
     Dosage: 20 MG, AS NEEDED
     Route: 030
     Dates: start: 20090509
  2. OLANZAPINE [Concomitant]
     Dosage: UNK
  3. LORAZEPAM [Concomitant]
     Dosage: UNK
  4. CLONAZEPAM [Concomitant]
     Dosage: UNK
  5. LITHIUM CARBONATE [Concomitant]
     Dosage: UNK
  6. NICOTINE [Concomitant]
     Dosage: UNK

REACTIONS (5)
  - AGGRESSION [None]
  - AGITATION [None]
  - AMNESIA [None]
  - DRUG HYPERSENSITIVITY [None]
  - OVERDOSE [None]
